FAERS Safety Report 19395569 (Version 5)
Quarter: 2021Q4

REPORT INFORMATION
  Report Type: Report from Study
  Country: US (occurrence: US)
  Receive Date: 20210609
  Receipt Date: 20211013
  Transmission Date: 20220304
  Serious: Yes (Hospitalization, Other)
  Sender: FDA-Public Use
  Company Number: US-OTSUKA-2021_018959

PATIENT
  Sex: Male
  Weight: 58.05 kg

DRUGS (2)
  1. CEDAZURIDINE\DECITABINE [Suspect]
     Active Substance: CEDAZURIDINE\DECITABINE
     Indication: Myelodysplastic syndrome
     Dosage: 100/35MG (35 MG DECITABINE AND 100 MG CEDAZURIDINE), QD 1-5 DAYS EVERY 28 DAY CYCLE
     Route: 048
     Dates: start: 20210514
  2. CEDAZURIDINE\DECITABINE [Suspect]
     Active Substance: CEDAZURIDINE\DECITABINE
     Dosage: 1 DF (35 MG DECITABINE AND 100 MG CEDAZURIDINE), QOD
     Route: 048

REACTIONS (6)
  - Transfusion [Unknown]
  - Haemoglobin decreased [Unknown]
  - Platelet count decreased [Unknown]
  - Constipation [Unknown]
  - White blood cell count decreased [Unknown]
  - Product use issue [Unknown]
